FAERS Safety Report 10194855 (Version 2)
Quarter: 2014Q2

REPORT INFORMATION
  Report Type: Spontaneous
  Country: US (occurrence: US)
  Receive Date: 20140526
  Receipt Date: 20140526
  Transmission Date: 20141212
  Serious: No
  Sender: FDA-Public Use
  Company Number: US-PFIZER INC-2014121853

PATIENT
  Age: 71 Year
  Sex: Male

DRUGS (1)
  1. PROTONIX [Suspect]
     Indication: GASTROOESOPHAGEAL REFLUX DISEASE
     Dosage: 40 MG, Q 12
     Dates: start: 20140501

REACTIONS (3)
  - Product quality issue [Unknown]
  - Underdose [Unknown]
  - Intentional product misuse [Unknown]
